FAERS Safety Report 10224329 (Version 2)
Quarter: 2014Q2

REPORT INFORMATION
  Report Type: Spontaneous
  Country: ES (occurrence: ES)
  Receive Date: 20140609
  Receipt Date: 20140612
  Transmission Date: 20141212
  Serious: Yes (Life-Threatening)
  Sender: FDA-Public Use
  Company Number: ES-SA-2014SA071147

PATIENT
  Age: 5 Year
  Sex: Female

DRUGS (5)
  1. CLOFARABINE [Suspect]
     Indication: ACUTE LYMPHOCYTIC LEUKAEMIA
     Route: 042
     Dates: start: 20140314, end: 20140318
  2. CLOFARABINE [Suspect]
     Indication: ACUTE LYMPHOCYTIC LEUKAEMIA
     Route: 065
     Dates: start: 20140505, end: 20140509
  3. CYCLOPHOSPHAMIDE [Concomitant]
     Dates: start: 20140314, end: 20140318
  4. ETOPOSIDE [Concomitant]
     Dates: start: 20140314, end: 20140318
  5. UROMITEXAN [Concomitant]
     Indication: PROPHYLAXIS

REACTIONS (2)
  - Venoocclusive liver disease [Recovered/Resolved]
  - Transaminases increased [Recovered/Resolved]
